FAERS Safety Report 14064215 (Version 1)
Quarter: 2017Q4

REPORT INFORMATION
  Report Type: Spontaneous
  Country: US (occurrence: US)
  Receive Date: 20171009
  Receipt Date: 20171009
  Transmission Date: 20180321
  Serious: Yes (Death, Hospitalization, Other)
  Sender: FDA-Public Use
  Company Number: US-RICONPHARMA LLC-2017RIC00020

PATIENT
  Age: 57 Year

DRUGS (1)
  1. QUININE SULFATE. [Suspect]
     Active Substance: QUININE SULFATE
     Route: 065

REACTIONS (5)
  - Microangiopathic haemolytic anaemia [Unknown]
  - Acute kidney injury [Unknown]
  - Metastatic neoplasm [None]
  - Thrombotic microangiopathy [Unknown]
  - Thrombocytopenia [Unknown]

NARRATIVE: CASE EVENT DATE: 2005
